FAERS Safety Report 6889211-3 (Version None)
Quarter: 2010Q3

REPORT INFORMATION
  Report Type: 
  Country: None (occurrence: None)
  Receive Date: 20100730
  Receipt Date: 20080108
  Transmission Date: 20110219
  Serious: No
  Sender: FDA-Public Use
  Company Number: US-PFIZER INC-2008005685

PATIENT
  Sex: Female

DRUGS (7)
  1. LIPITOR [Suspect]
  2. RANITIDINE [Concomitant]
  3. METFORMIN HYDROCHLORIDE [Concomitant]
     Dates: start: 20010101
  4. GLIPIZIDE [Concomitant]
  5. GABAPENTIN [Concomitant]
  6. CITALOPRAM [Concomitant]
  7. ZETIA [Concomitant]

REACTIONS (2)
  - ASTHENIA [None]
  - DYSPNOEA [None]
